FAERS Safety Report 10156594 (Version 3)
Quarter: 2014Q3

REPORT INFORMATION
  Report Type: Spontaneous
  Country: US (occurrence: None)
  Receive Date: 20140505
  Receipt Date: 20140714
  Transmission Date: 20150326
  Serious: Yes (Other)
  Sender: FDA-Public Use
  Company Number: 2014-19436

PATIENT
  Age: 77 Year
  Sex: Female

DRUGS (4)
  1. EYLEA [Suspect]
     Active Substance: AFLIBERCEPT
     Indication: AGE-RELATED MACULAR DEGENERATION
     Dosage: 2 MG MILLIGRAM(S), EVERY 2 TO 3 MONTHS, INTRAOCULAR
     Route: 031
     Dates: start: 20120327
  2. SIMVASTATIN (SIMVASTATIN) [Concomitant]
     Active Substance: SIMVASTATIN
  3. LISINOPRIL (LISINOPRIL) [Concomitant]
     Active Substance: LISINOPRIL
  4. SINGULAIR (MONTELUKAST SODIUM) [Concomitant]

REACTIONS (6)
  - Blindness transient [None]
  - Endophthalmitis [None]
  - Blindness [None]
  - Visual acuity reduced [None]
  - Vitreous floaters [None]
  - Pain [None]

NARRATIVE: CASE EVENT DATE: 20140419
